FAERS Safety Report 8873954 (Version 1)
Quarter: 2012Q4

REPORT INFORMATION
  Report Type: 
  Country: CH (occurrence: CH)
  Receive Date: 20121030
  Receipt Date: 20121030
  Transmission Date: 20130627
  Serious: Yes (Other)
  Sender: FDA-Public Use
  Company Number: PHHY2012CH094272

PATIENT
  Age: 59 Year
  Sex: Male

DRUGS (6)
  1. SIMVASTATIN [Suspect]
     Indication: HYPERCHOLESTEROLAEMIA
     Dates: end: 20120626
  2. METFORMIN [Suspect]
     Dates: end: 20120626
  3. AMARYL [Concomitant]
  4. VICTOZA [Concomitant]
  5. MICARDIS [Concomitant]
  6. PANTOZOL [Concomitant]

REACTIONS (3)
  - Interstitial lung disease [Recovering/Resolving]
  - Dyspnoea [Recovering/Resolving]
  - Haemoptysis [Recovering/Resolving]
